FAERS Safety Report 7313773-5 (Version None)
Quarter: 2011Q1

REPORT INFORMATION
  Report Type: 
  Country: None (occurrence: None)
  Receive Date: 20110215
  Receipt Date: 20110202
  Transmission Date: 20110831
  Serious: Yes (Hospitalization, Disabling, Other)
  Sender: FDA-Public Use
  Company Number: 20110102

PATIENT
  Age: 83 Year
  Sex: Female

DRUGS (2)
  1. DEXAMETHASONE SODIUM PHOSPHATE INJECTION, USP [Suspect]
     Indication: ARTHRALGIA
     Dosage: INJECTION NOS
     Dates: start: 20101004, end: 20101004
  2. DEXAMETHASONE SODIUM PHOSPHATE INJECTION, USP [Suspect]
     Indication: ARTHRITIS
     Dosage: INJECTION NOS
     Dates: start: 20101004, end: 20101004

REACTIONS (6)
  - INJECTION SITE JOINT SWELLING [None]
  - SKIN LESION [None]
  - INJECTION SITE WARMTH [None]
  - INJECTION SITE PAIN [None]
  - INJECTION SITE ERYTHEMA [None]
  - INFECTION [None]
